FAERS Safety Report 11760591 (Version 1)
Quarter: 2015Q4

REPORT INFORMATION
  Report Type: Spontaneous
  Country: US (occurrence: US)
  Receive Date: 20151120
  Receipt Date: 20151120
  Transmission Date: 20160304
  Serious: No
  Sender: FDA-Public Use
  Company Number: US-ELI_LILLY_AND_COMPANY-US201210008023

PATIENT
  Age: 90 Year
  Sex: Female

DRUGS (2)
  1. COUMADIN [Concomitant]
     Active Substance: WARFARIN SODIUM
  2. FORTEO [Suspect]
     Active Substance: TERIPARATIDE
     Indication: OSTEOPOROSIS
     Dosage: 20 UG, QD
     Dates: start: 20121001, end: 20121028

REACTIONS (8)
  - Decreased appetite [Unknown]
  - Back disorder [Unknown]
  - Injection site haemorrhage [Unknown]
  - Vision blurred [Recovering/Resolving]
  - Intentional product misuse [Unknown]
  - Feeling abnormal [Unknown]
  - Nausea [Unknown]
  - Back pain [Recovering/Resolving]

NARRATIVE: CASE EVENT DATE: 201210
